FAERS Safety Report 14485705 (Version 4)
Quarter: 2018Q2

REPORT INFORMATION
  Report Type: Report from Study
  Country: FR (occurrence: FR)
  Receive Date: 20180205
  Receipt Date: 20180502
  Transmission Date: 20180711
  Serious: Yes (Life-Threatening, Other)
  Sender: FDA-Public Use
  Company Number: FR-SHIRE-FR201802769

PATIENT

DRUGS (15)
  1. DEXAMETHASONE. [Suspect]
     Active Substance: DEXAMETHASONE
     Dosage: 15.5 MG, UNK
     Route: 048
     Dates: start: 20171226, end: 20180101
  2. CYTARABINE. [Suspect]
     Active Substance: CYTARABINE
     Indication: ACUTE LYMPHOCYTIC LEUKAEMIA
     Dosage: 30 MG, 1X/DAY:QD
     Route: 037
     Dates: start: 20171214
  3. PEGASPARGASE [Suspect]
     Active Substance: PEGASPARGASE
     Indication: ACUTE LYMPHOCYTIC LEUKAEMIA
     Dosage: 1940 IU, 1X/DAY:QD
     Route: 042
     Dates: start: 20171214
  4. DOXORUBICIN [Suspect]
     Active Substance: DOXORUBICIN
     Dosage: 46.5 MG, UNK
     Route: 042
     Dates: start: 20171218
  5. SULFAMETHOXAZOLE AND TRIMETHOPRIM [Concomitant]
     Active Substance: SULFAMETHOXAZOLE\TRIMETHOPRIM
     Indication: ANTIFUNGAL PROPHYLAXIS
  6. VINCRISTINE [Suspect]
     Active Substance: VINCRISTINE
     Dosage: 2 UNK, UNK
     Route: 042
     Dates: start: 20171218
  7. VINCRISTINE [Suspect]
     Active Substance: VINCRISTINE
     Dosage: 2 UNK, UNK
     Route: 042
     Dates: start: 20171226
  8. DOXORUBICIN [Suspect]
     Active Substance: DOXORUBICIN
     Dosage: 46.5 MG, UNK
     Route: 042
     Dates: start: 20171226
  9. FENOFIBRATE. [Concomitant]
     Active Substance: FENOFIBRATE
     Indication: HYPERTRIGLYCERIDAEMIA
  10. DEXAMETHASONE. [Suspect]
     Active Substance: DEXAMETHASONE
     Indication: ACUTE LYMPHOCYTIC LEUKAEMIA
     Dosage: 15.5 MG, 1X/DAY:QD
     Route: 048
     Dates: start: 20171211, end: 20171217
  11. METHOTREXATE. [Suspect]
     Active Substance: METHOTREXATE
     Indication: ACUTE LYMPHOCYTIC LEUKAEMIA
     Dosage: 15 MG, 1X/DAY:QD
     Route: 037
     Dates: start: 20171214
  12. HYDROCORTISONE. [Suspect]
     Active Substance: HYDROCORTISONE
     Indication: ACUTE LYMPHOCYTIC LEUKAEMIA
     Dosage: 15 MG, 1X/DAY:QD
     Route: 037
     Dates: start: 20171214
  13. VINCRISTINE [Suspect]
     Active Substance: VINCRISTINE
     Indication: ACUTE LYMPHOCYTIC LEUKAEMIA
     Dosage: 2 MG, UNK
     Route: 042
     Dates: start: 20171211
  14. DOXORUBICIN [Suspect]
     Active Substance: DOXORUBICIN
     Indication: ACUTE LYMPHOCYTIC LEUKAEMIA
     Dosage: 46.5 MG, 1X/DAY:QD
     Route: 042
     Dates: start: 20171211
  15. OMEGA 3                            /01334101/ [Concomitant]
     Active Substance: OMEGA-3 FATTY ACIDS
     Indication: HYPERTRIGLYCERIDAEMIA

REACTIONS (2)
  - Potentiating drug interaction [Recovered/Resolved]
  - Cerebrovascular accident [Recovered/Resolved]

NARRATIVE: CASE EVENT DATE: 20180122
